FAERS Safety Report 7983029-6 (Version None)
Quarter: 2011Q4

REPORT INFORMATION
  Report Type: 
  Country: None (occurrence: None)
  Receive Date: 20111215
  Receipt Date: 20111205
  Transmission Date: 20120403
  Serious: Yes (Hospitalization, Other)
  Sender: FDA-Public Use
  Company Number: US-JNJFOC-20111202445

PATIENT
  Sex: Male
  Weight: 92.53 kg

DRUGS (8)
  1. REMICADE [Suspect]
     Indication: CROHN'S DISEASE
     Route: 042
     Dates: start: 20050101, end: 20080101
  2. ISOSORBIDE DINITRATE [Concomitant]
     Indication: CARDIAC DISORDER
     Dosage: 30MG/ TABLET/60MG1/2 TAB PER DAY
     Route: 048
     Dates: start: 20050101
  3. DIFLUNISAL [Concomitant]
     Indication: ARTHRITIS
     Route: 048
  4. ASPIRIN [Concomitant]
     Indication: CARDIAC DISORDER
     Route: 048
     Dates: start: 20050101
  5. IRON [Concomitant]
     Indication: CARDIAC DISORDER
     Dosage: 65MG/TABLET/65MG/ 3 TIMES PER /DAY
     Route: 048
     Dates: start: 20020101
  6. REMICADE [Suspect]
     Route: 042
     Dates: start: 20110101, end: 20110101
  7. LEVOTHYROXINE SODIUM [Concomitant]
     Indication: THYROID DISORDER
     Route: 048
  8. OMEPRAZOLE [Concomitant]
     Indication: DYSPEPSIA
     Route: 048

REACTIONS (17)
  - ARTHRITIS [None]
  - FALL [None]
  - BLOOD CHOLESTEROL INCREASED [None]
  - INTERVERTEBRAL DISC DISORDER [None]
  - HEART RATE IRREGULAR [None]
  - DIZZINESS [None]
  - NASOPHARYNGITIS [None]
  - OSTEOARTHRITIS [None]
  - CHEST PAIN [None]
  - NEUROPATHY PERIPHERAL [None]
  - ANAEMIA [None]
  - DYSURIA [None]
  - MUSCLE SPASMS [None]
  - INTESTINAL OBSTRUCTION [None]
  - JOINT DISLOCATION [None]
  - CROHN'S DISEASE [None]
  - ADVERSE EVENT [None]
